FAERS Safety Report 7445250-5 (Version None)
Quarter: 2011Q2

REPORT INFORMATION
  Report Type: 
  Country: None (occurrence: None)
  Receive Date: 20110429
  Receipt Date: 20110422
  Transmission Date: 20111010
  Serious: Yes (Hospitalization)
  Sender: FDA-Public Use
  Company Number: PR-B.I. PHARMACEUTICALS,INC./RIDGEFIELD-2011-BP-11503BP

PATIENT
  Age: 79 Year
  Sex: Male

DRUGS (5)
  1. SEROQUEL [Concomitant]
     Indication: DEMENTIA
     Dates: start: 20050101
  2. EXCELON PATCH [Concomitant]
     Indication: PARKINSON'S DISEASE
     Dates: start: 20110401
  3. MIRAPEX [Suspect]
     Indication: PARKINSON'S DISEASE
  4. SINEMET [Concomitant]
     Indication: PARKINSON'S DISEASE
     Dates: start: 20050101
  5. FERROUS SULFATE TAB [Concomitant]
     Indication: ROUTINE HEALTH MAINTENANCE
     Dates: start: 20050101

REACTIONS (4)
  - NAUSEA [None]
  - HALLUCINATION [None]
  - DIZZINESS [None]
  - PNEUMONIA [None]
